FAERS Safety Report 7998540-1 (Version None)
Quarter: 2011Q4

REPORT INFORMATION
  Report Type: 
  Country: None (occurrence: None)
  Receive Date: 20111221
  Receipt Date: 20111209
  Transmission Date: 20120403
  Serious: Yes (Other)
  Sender: FDA-Public Use
  Company Number: JP-BRISTOL-MYERS SQUIBB COMPANY-15050594

PATIENT
  Age: 34 Year
  Sex: Female

DRUGS (1)
  1. ABILIFY [Suspect]
     Indication: SCHIZOPHRENIA
     Dosage: 3MG,28MAR:24APR,6MG 25APR:8MAY,12MG,9:22MAY,18MG23MAY07:19JUN07,24MG,20JUN07:5FEB10,6FEB10:18MG,12MG
     Route: 048
     Dates: start: 20070328, end: 20110916

REACTIONS (4)
  - GESTATIONAL DIABETES [None]
  - NORMAL NEWBORN [None]
  - PREGNANCY [None]
  - EXPOSURE VIA FATHER [None]
